FAERS Safety Report 24095134 (Version 2)
Quarter: 2024Q3

REPORT INFORMATION
  Report Type: Report from Study
  Country: PK (occurrence: PK)
  Receive Date: 20240716
  Receipt Date: 20240820
  Transmission Date: 20241016
  Serious: Yes (Other)
  Sender: ROCHE
  Company Number: PK-ROCHE-10000022598

PATIENT
  Age: 79 Year
  Sex: Male

DRUGS (7)
  1. RITUXIMAB [Suspect]
     Active Substance: RITUXIMAB
     Indication: Follicular lymphoma
     Dosage: 6 CYCLES
     Route: 042
     Dates: start: 20240703
  2. RITUXIMAB [Suspect]
     Active Substance: RITUXIMAB
     Indication: Diffuse large B-cell lymphoma
     Dosage: DIFFUSE LARGE B CELL LYMPHOMA FOR RISTOVA 600MG 8CYLCES
     Route: 042
  3. RITUXIMAB [Suspect]
     Active Substance: RITUXIMAB
     Dosage: DIFFUSE LARGE B CELL LYMPHOMA FOR RISTOVA 600MG 8CYLCES
     Route: 042
  4. RITUXIMAB [Suspect]
     Active Substance: RITUXIMAB
     Dosage: DIFFUSE LARGE B CELL LYMPHOMA FOR RISTOVA 600MG 8CYLCES
     Route: 042
  5. RITUXIMAB [Suspect]
     Active Substance: RITUXIMAB
     Dosage: DIFFUSE LARGE B CELL LYMPHOMA FOR RISTOVA 600MG 8CYLCES
     Route: 042
  6. RITUXIMAB [Suspect]
     Active Substance: RITUXIMAB
     Dosage: DIFFUSE LARGE B CELL LYMPHOMA FOR RISTOVA 600MG 8CYLCES
     Route: 042
  7. RITUXIMAB [Suspect]
     Active Substance: RITUXIMAB
     Dosage: 6 CYCLES
     Route: 042

REACTIONS (1)
  - Lymphoma transformation [Unknown]

NARRATIVE: CASE EVENT DATE: 20240703
